FAERS Safety Report 15776152 (Version 1)
Quarter: 2018Q4

REPORT INFORMATION
  Report Type: Spontaneous
  Country: US (occurrence: US)
  Receive Date: 20181231
  Receipt Date: 20181231
  Transmission Date: 20190205
  Serious: Yes (Other)
  Sender: FDA-Public Use
  Company Number: US-AMGEN-USASP2018185683

PATIENT
  Sex: Male

DRUGS (1)
  1. ENBREL [Suspect]
     Active Substance: ETANERCEPT
     Indication: ANKYLOSING SPONDYLITIS
     Dosage: 50 MG, QWK ON SUNDAY
     Route: 065
     Dates: start: 2007

REACTIONS (6)
  - Diverticulitis [Unknown]
  - Pain [Unknown]
  - Malaise [Unknown]
  - Drug effect decreased [Unknown]
  - Nasal septum deviation [Unknown]
  - Carpal tunnel syndrome [Unknown]
